APPROVED DRUG PRODUCT: CEPHRADINE
Active Ingredient: CEPHRADINE
Strength: 500MG
Dosage Form/Route: CAPSULE;ORAL
Application: A062851 | Product #001
Applicant: BARR LABORATORIES INC
Approved: Apr 22, 1988 | RLD: No | RS: No | Type: DISCN